FAERS Safety Report 9917254 (Version 2)
Quarter: 2014Q1

REPORT INFORMATION
  Report Type: Report from Study
  Country: JP (occurrence: JP)
  Receive Date: 20140221
  Receipt Date: 20140314
  Transmission Date: 20141002
  Serious: Yes (Life-Threatening, Other)
  Sender: FDA-Public Use
  Company Number: JP-TAKEDA-2014TJP001714

PATIENT
  Age: 63 Year
  Sex: Female
  Weight: 63 kg

DRUGS (7)
  1. ALOGLIPTIN [Suspect]
     Indication: TYPE 2 DIABETES MELLITUS
     Dosage: 25 MG, QD
     Route: 048
     Dates: start: 20121205, end: 20130524
  2. ACTOS TABLETS 30 [Suspect]
     Indication: TYPE 2 DIABETES MELLITUS
     Dosage: 15 MG, 1 DAYS
     Route: 048
     Dates: end: 20130524
  3. GLIMEPIRIDE [Concomitant]
     Indication: TYPE 2 DIABETES MELLITUS
     Dosage: 0.5 MG, 1 DAYS
     Route: 048
     Dates: start: 20130130, end: 20130407
  4. GLIMEPIRIDE [Concomitant]
     Dosage: 1 MG, 1 DAYS
     Route: 048
     Dates: start: 20130408, end: 20130524
  5. MICARDIS [Concomitant]
     Dosage: 40 MG,1 DAYS
     Route: 048
     Dates: start: 20121205, end: 20130324
  6. MICARDIS [Concomitant]
     Dosage: 20 MG, 1 DAYS
     Route: 048
     Dates: start: 20130325, end: 20130524
  7. LIVALO [Concomitant]
     Dosage: 2 MG,1 DAYS
     Route: 048
     Dates: end: 20130524

REACTIONS (1)
  - Pancreatic carcinoma [Not Recovered/Not Resolved]
